FAERS Safety Report 4965678-2 (Version None)
Quarter: 2006Q2

REPORT INFORMATION
  Report Type: 
  Country: None (occurrence: None)
  Receive Date: 20060407
  Receipt Date: 20060327
  Transmission Date: 20061013
  Serious: Yes (Other)
  Sender: FDA-Public Use
  Company Number: GB-ABBOTT-06P-167-0329443-00

PATIENT
  Age: 33 Year
  Sex: Female
  Weight: 63 kg

DRUGS (2)
  1. REDUCTIL 15MG [Suspect]
     Indication: WEIGHT DECREASED
     Dates: start: 20050501
  2. EUGYNON [Concomitant]
     Indication: CONTRACEPTION

REACTIONS (1)
  - PHOTOSENSITIVITY REACTION [None]
